FAERS Safety Report 10084998 (Version 5)
Quarter: 2014Q4

REPORT INFORMATION
  Report Type: Report from Study
  Country: US (occurrence: US)
  Receive Date: 20140417
  Receipt Date: 20141017
  Transmission Date: 20150528
  Serious: Yes (Other)
  Sender: FDA-Public Use
  Company Number: US-SA-2014SA037388

PATIENT
  Age: 34 Year
  Sex: Female
  Weight: 97 kg

DRUGS (10)
  1. HYDROCHLOROTHIAZIDE/METOPROLOL [Concomitant]
     Indication: HYPERTENSION
     Route: 048
     Dates: start: 20140211, end: 20140314
  2. CORTEF /CAN/ [Concomitant]
     Route: 048
  3. HYDROCHLOROTHIAZIDE/METOPROLOL SUCCINATE [Concomitant]
     Active Substance: HYDROCHLOROTHIAZIDE\METOPROLOL SUCCINATE
     Route: 048
  4. VITAMINS [Concomitant]
     Active Substance: VITAMINS
     Route: 048
     Dates: start: 20140211, end: 20140324
  5. QUESTRAN [Concomitant]
     Active Substance: CHOLESTYRAMINE
     Dosage: 2 PACKS, 4G PACK
     Dates: start: 20140317, end: 20140324
  6. NECON [Concomitant]
     Active Substance: ETHINYL ESTRADIOL\NORETHINDRONE
     Route: 048
  7. ZOLOFT [Concomitant]
     Active Substance: SERTRALINE HYDROCHLORIDE
     Dates: start: 20140211, end: 20140314
  8. CHARCOAL, ACTIVATED [Concomitant]
     Active Substance: ACTIVATED CHARCOAL
     Dates: start: 20140317, end: 20140324
  9. CAFFEINE. [Concomitant]
     Active Substance: CAFFEINE
     Dosage: 1 SERVIN
     Route: 048
     Dates: start: 20140211, end: 20140318
  10. AUBAGIO [Suspect]
     Active Substance: TERIFLUNOMIDE
     Indication: MULTIPLE SCLEROSIS
     Route: 065
     Dates: start: 20130615, end: 20140314

REACTIONS (2)
  - Exposure during pregnancy [Unknown]
  - Abortion spontaneous [Unknown]

NARRATIVE: CASE EVENT DATE: 20140324
